FAERS Safety Report 25314626 (Version 2)
Quarter: 2025Q2

REPORT INFORMATION
  Report Type: Spontaneous
  Country: JP (occurrence: JP)
  Receive Date: 20250514
  Receipt Date: 20250519
  Transmission Date: 20250716
  Serious: Yes (Other)
  Sender: NOVO NORDISK
  Company Number: JP-NOVOPROD-1417199

PATIENT
  Age: 59 Year
  Sex: Male
  Weight: 55 kg

DRUGS (7)
  1. CONCIZUMAB [Suspect]
     Active Substance: CONCIZUMAB
     Indication: Haemophilia
     Dosage: 11 MG, QD
     Route: 058
     Dates: start: 20250215
  2. DESCOVY [Concomitant]
     Active Substance: EMTRICITABINE\TENOFOVIR ALAFENAMIDE FUMARATE
     Route: 048
  3. TIVICAY [Concomitant]
     Active Substance: DOLUTEGRAVIR SODIUM
     Dosage: 50 MG, QD
     Route: 048
  4. MARAVIROC [Concomitant]
     Active Substance: MARAVIROC
     Dosage: 150 MG, QD
     Route: 048
  5. SULFAMETHOXAZOLE\TRIMETHOPRIM [Concomitant]
     Active Substance: SULFAMETHOXAZOLE\TRIMETHOPRIM
     Route: 048
  6. VALSARTAN [Concomitant]
     Active Substance: VALSARTAN
     Dosage: 40 MG, QD
     Route: 048
  7. FEBUXOSTAT [Concomitant]
     Active Substance: FEBUXOSTAT
     Dosage: 20 MG, QD
     Route: 048

REACTIONS (1)
  - Haemarthrosis [Recovering/Resolving]
